FAERS Safety Report 23653403 (Version 2)
Quarter: 2024Q2

REPORT INFORMATION
  Report Type: Spontaneous
  Country: BR (occurrence: BR)
  Receive Date: 20240320
  Receipt Date: 20240404
  Transmission Date: 20240716
  Serious: Yes (Hospitalization, Other)
  Sender: FDA-Public Use
  Company Number: None

PATIENT
  Sex: Female

DRUGS (22)
  1. PREDNISONE [Suspect]
     Active Substance: PREDNISONE
     Indication: Diffuse large B-cell lymphoma
     Dosage: UNK UNK, QCY (R-CHOP)
     Dates: start: 2016
  2. PREDNISONE [Suspect]
     Active Substance: PREDNISONE
     Indication: Uterine cancer
  3. OXALIPLATIN [Suspect]
     Active Substance: OXALIPLATIN
     Indication: Diffuse large B-cell lymphoma stage III
     Dosage: UNK, QCY
  4. OXALIPLATIN [Suspect]
     Active Substance: OXALIPLATIN
     Indication: Uterine cancer
  5. CYCLOPHOSPHAMIDE [Suspect]
     Active Substance: CYCLOPHOSPHAMIDE
     Indication: Diffuse large B-cell lymphoma
     Dosage: UNK, QCY ( R-CHOP)
     Dates: start: 2016
  6. CYCLOPHOSPHAMIDE [Suspect]
     Active Substance: CYCLOPHOSPHAMIDE
     Indication: Uterine cancer
  7. CARBOPLATIN [Suspect]
     Active Substance: CARBOPLATIN
     Indication: Diffuse large B-cell lymphoma stage III
     Dosage: UNK, QCY (R-ICE)
  8. CARBOPLATIN [Suspect]
     Active Substance: CARBOPLATIN
     Indication: Uterine cancer
  9. DOXORUBICIN [Suspect]
     Active Substance: DOXORUBICIN
     Indication: Uterine cancer
     Dosage: UNK, QCY (R-CHOP)
     Dates: start: 2016
  10. DOXORUBICIN [Suspect]
     Active Substance: DOXORUBICIN
     Indication: Diffuse large B-cell lymphoma
  11. VINCRISTINE [Suspect]
     Active Substance: VINCRISTINE
     Indication: Diffuse large B-cell lymphoma stage III
     Dosage: UNK, QCY (R-CHOP)
     Dates: start: 2016
  12. VINCRISTINE [Suspect]
     Active Substance: VINCRISTINE
     Indication: Uterine cancer
  13. RITUXIMAB [Suspect]
     Active Substance: RITUXIMAB
     Indication: Diffuse large B-cell lymphoma stage III
     Dosage: UNK, QCY (R-ICE)
  14. RITUXIMAB [Suspect]
     Active Substance: RITUXIMAB
     Indication: Uterine cancer
     Dosage: UNK, QCY (R-CHOP)
  15. ETOPOSIDE [Suspect]
     Active Substance: ETOPOSIDE
     Indication: Diffuse large B-cell lymphoma stage III
     Dosage: UNK, QCY (R-ICE)
  16. ETOPOSIDE [Suspect]
     Active Substance: ETOPOSIDE
     Indication: Uterine cancer
  17. GEMCITABINE [Suspect]
     Active Substance: GEMCITABINE
     Indication: Uterine cancer
     Dosage: UNK, QCY
  18. GEMCITABINE [Suspect]
     Active Substance: GEMCITABINE
     Indication: Diffuse large B-cell lymphoma
  19. IFOSFAMIDE [Suspect]
     Active Substance: IFOSFAMIDE
     Indication: Diffuse large B-cell lymphoma stage III
     Dosage: UNK, QCY (R-ICE)
  20. IFOSFAMIDE [Suspect]
     Active Substance: IFOSFAMIDE
     Indication: Uterine cancer
  21. MESNA [Concomitant]
     Active Substance: MESNA
     Indication: Diffuse large B-cell lymphoma stage III
     Dosage: UNK
  22. MESNA [Concomitant]
     Active Substance: MESNA
     Indication: Uterine cancer

REACTIONS (7)
  - Mitral valve incompetence [Recovering/Resolving]
  - Heart failure with reduced ejection fraction [Recovering/Resolving]
  - Hypoperfusion [Recovering/Resolving]
  - Cardiac failure [Recovering/Resolving]
  - Cardiotoxicity [Recovering/Resolving]
  - Aortic valve incompetence [Recovering/Resolving]
  - Myocardial ischaemia [Recovering/Resolving]

NARRATIVE: CASE EVENT DATE: 20180101
